FAERS Safety Report 6682539-1 (Version None)
Quarter: 2010Q2

REPORT INFORMATION
  Report Type: 
  Country: None (occurrence: None)
  Receive Date: 20100415
  Receipt Date: 20100408
  Transmission Date: 20101027
  Serious: Yes (Other)
  Sender: FDA-Public Use
  Company Number: US-SANOFI-AVENTIS-2010SA020853

PATIENT
  Sex: Female

DRUGS (2)
  1. LOVENOX [Suspect]
     Route: 065
     Dates: start: 20080101
  2. HEPARIN [Suspect]
     Route: 065
     Dates: start: 20080101

REACTIONS (1)
  - NEOPLASM MALIGNANT [None]
